FAERS Safety Report 4465488-9 (Version None)
Quarter: 2004Q4

REPORT INFORMATION
  Report Type: 
  Country: None (occurrence: None)
  Receive Date: 20041001
  Receipt Date: 20040927
  Transmission Date: 20050328
  Serious: Yes (Other)
  Sender: FDA-Public Use
  Company Number: 002798

PATIENT
  Age: 55 Year
  Sex: Female

DRUGS (5)
  1. MEDROXYPROGESTERONE ACETATE [Suspect]
     Dates: start: 19950101, end: 19980101
  2. PROVERA [Suspect]
     Dates: start: 19950101, end: 19980101
  3. PREMARIN [Suspect]
     Dates: start: 19950101, end: 19980101
  4. MEDROXYPROGESTERONE ACETATE [Concomitant]
     Dates: start: 19980101, end: 20020601
  5. ACTIVELLA [Concomitant]
     Dates: start: 20020801, end: 20030601

REACTIONS (1)
  - BREAST CANCER FEMALE [None]
